FAERS Safety Report 9517358 (Version 2)
Quarter: 2013Q3

REPORT INFORMATION
  Report Type: Report from Study
  Country: US (occurrence: US)
  Receive Date: 20130911
  Receipt Date: 20130911
  Transmission Date: 20140515
  Serious: Yes (Other)
  Sender: FDA-Public Use
  Company Number: US-SANOFI-AVENTIS-2013SA066495

PATIENT
  Age: 59 Year
  Sex: Male

DRUGS (1)
  1. AUBAGIO [Suspect]
     Indication: MULTIPLE SCLEROSIS
     Dosage: TAKEN FROM- ABOUT 6-8 MONTHS AGO
     Route: 048

REACTIONS (3)
  - Infected skin ulcer [Recovering/Resolving]
  - Blood glucose increased [Unknown]
  - Depression [Unknown]
